FAERS Safety Report 17237457 (Version 2)
Quarter: 2020Q1

REPORT INFORMATION
  Report Type: Report from Study
  Country: PT (occurrence: PT)
  Receive Date: 20200106
  Receipt Date: 20200130
  Transmission Date: 20200409
  Serious: Yes (Life-Threatening, Hospitalization)
  Sender: FDA-Public Use
  Company Number: PT-JNJFOC-20191244735

PATIENT
  Age: 53 Year
  Sex: Female
  Weight: 81 kg

DRUGS (5)
  1. METAMIZOLE [Concomitant]
     Active Substance: METAMIZOLE
     Indication: INFLUENZA LIKE ILLNESS
     Route: 065
     Dates: start: 20191210, end: 20191222
  2. AZITHROMYCIN ANHYDROUS. [Concomitant]
     Active Substance: AZITHROMYCIN ANHYDROUS
     Indication: TRACHEOBRONCHITIS BACTERIAL
     Route: 065
     Dates: start: 20191216, end: 20191220
  3. USTEKINUMAB [Suspect]
     Active Substance: USTEKINUMAB
     Indication: CROHN^S DISEASE
     Route: 058
  4. CEFUROXIME. [Concomitant]
     Active Substance: CEFUROXIME
     Indication: TRACHEOBRONCHITIS BACTERIAL
     Route: 065
     Dates: start: 20191214, end: 20191222
  5. TRAMADOL. [Concomitant]
     Active Substance: TRAMADOL
     Indication: INFLUENZA LIKE ILLNESS
     Route: 065
     Dates: start: 20191210, end: 20191222

REACTIONS (1)
  - Abscess intestinal [Recovered/Resolved with Sequelae]

NARRATIVE: CASE EVENT DATE: 20191222
